FAERS Safety Report 8294959-2 (Version None)
Quarter: 2012Q2

REPORT INFORMATION
  Report Type: 
  Country: None (occurrence: None)
  Receive Date: 20120418
  Receipt Date: 20120409
  Transmission Date: 20120825
  Serious: Yes (Other)
  Sender: FDA-Public Use
  Company Number: JP-JNJFOC-20110803821

PATIENT
  Sex: Male
  Weight: 43 kg

DRUGS (8)
  1. ITRACONAZOLE [Suspect]
     Indication: BRONCHOPULMONARY ASPERGILLOSIS
     Route: 048
     Dates: start: 20110607, end: 20110713
  2. MUCODYNE [Concomitant]
     Indication: COUGH
     Route: 048
     Dates: start: 20090702
  3. BAKUMONDOUTO [Suspect]
     Indication: LUNG DISORDER
     Route: 048
     Dates: start: 20080731, end: 20110713
  4. BAKUMONDOUTO [Suspect]
     Indication: COUGH
     Route: 048
     Dates: start: 20080731, end: 20110713
  5. ITRACONAZOLE [Suspect]
     Indication: BRONCHOPULMONARY ASPERGILLOSIS
     Route: 048
     Dates: start: 20110512, end: 20110606
  6. MUCODYNE [Concomitant]
     Indication: LUNG NEOPLASM MALIGNANT
     Route: 048
     Dates: start: 20090702
  7. LOXONIN [Concomitant]
     Indication: PERIARTHRITIS
     Route: 048
     Dates: start: 20071004
  8. FLUNASE [Concomitant]
     Indication: RHINITIS
     Route: 045
     Dates: start: 20071227, end: 20110713

REACTIONS (1)
  - INTERSTITIAL LUNG DISEASE [None]
